FAERS Safety Report 6017228-X (Version None)
Quarter: 2008Q4

REPORT INFORMATION
  Report Type: 
  Country: None (occurrence: None)
  Receive Date: 20081223
  Receipt Date: 20081217
  Transmission Date: 20090506
  Serious: Yes (Other)
  Sender: FDA-Public Use
  Company Number: GB-ASTRAZENECA-2008GB02362

PATIENT
  Age: 38 Year
  Sex: Male

DRUGS (6)
  1. SEROQUEL [Suspect]
     Indication: AGITATION
     Route: 048
     Dates: start: 20081107, end: 20081108
  2. SEROQUEL [Suspect]
     Indication: ANXIETY
     Route: 048
     Dates: start: 20081107, end: 20081108
  3. SEROQUEL [Suspect]
     Indication: PARANOIA
     Route: 048
     Dates: start: 20081107, end: 20081108
  4. AMPHETAMINE SULFATE [Concomitant]
     Dosage: SELF-MEDICATION USED WITHIN THE WEEK PRIOR TO THE EVENTS
  5. LITHIUM CARBONATE [Concomitant]
  6. OLANZAPINE [Concomitant]

REACTIONS (4)
  - FEELING ABNORMAL [None]
  - HYPOTENSION [None]
  - MEMORY IMPAIRMENT [None]
  - SEDATION [None]
